FAERS Safety Report 13395911 (Version 7)
Quarter: 2018Q3

REPORT INFORMATION
  Report Type: Spontaneous
  Country: NL (occurrence: NL)
  Receive Date: 20170403
  Receipt Date: 20180915
  Transmission Date: 20181010
  Serious: Yes (Death, Life-Threatening, Other)
  Sender: FDA-Public Use
  Company Number: NL-AUROBINDO-AUR-APL-2017-30433

PATIENT
  Age: 78 Year
  Sex: Male

DRUGS (7)
  1. FLUCLOXACILLIN [Suspect]
     Active Substance: FLUCLOXACILLIN
     Indication: STAPHYLOCOCCAL INFECTION
     Dosage: 4 GRAM, ONCE A DAY
     Route: 042
  2. LISINOPRIL TABLET [Suspect]
     Active Substance: LISINOPRIL
     Indication: PRODUCT USED FOR UNKNOWN INDICATION
     Dosage: 20 MILLIGRAM, ONCE A DAY
     Route: 065
  3. METFORMIN [Suspect]
     Active Substance: METFORMIN HYDROCHLORIDE
     Indication: TYPE 2 DIABETES MELLITUS
     Dosage: 1000 MILLIGRAM
     Route: 065
  4. METHOTREXATE. [Suspect]
     Active Substance: METHOTREXATE
     Dosage: 8 MILLIGRAM, EVERY WEEK
     Route: 065
  5. METHOTREXATE. [Suspect]
     Active Substance: METHOTREXATE
     Indication: PSORIATIC ARTHROPATHY
     Dosage: 7.5 MILLIGRAM,LOW DOSE
     Route: 065
  6. FOLIC ACID. [Concomitant]
     Active Substance: FOLIC ACID
     Indication: PSORIATIC ARTHROPATHY
     Dosage: 5 MILLIGRAM
     Route: 065
  7. FOLIC ACID. [Concomitant]
     Active Substance: FOLIC ACID
     Indication: TOXICITY TO VARIOUS AGENTS
     Dosage: 800 MILLIGRAM, ONCE A DAY
     Route: 042

REACTIONS (10)
  - Multiple organ dysfunction syndrome [Fatal]
  - Pancytopenia [Unknown]
  - Metabolic acidosis [Unknown]
  - Renal tubular necrosis [Unknown]
  - Sepsis [Fatal]
  - Drug ineffective [Fatal]
  - Mucosal inflammation [Unknown]
  - Stomatitis [Unknown]
  - Renal impairment [Fatal]
  - Toxicity to various agents [Fatal]
